FAERS Safety Report 8141942-3 (Version None)
Quarter: 2012Q1

REPORT INFORMATION
  Report Type: 
  Country: None (occurrence: None)
  Receive Date: 20120216
  Receipt Date: 20120206
  Transmission Date: 20120608
  Serious: Yes (Death, Life-Threatening, Hospitalization)
  Sender: FDA-Public Use
  Company Number: FR-GLAXOSMITHKLINE-B0774647A

PATIENT
  Age: 54 Year
  Sex: Female
  Weight: 50 kg

DRUGS (3)
  1. ARIXTRA [Suspect]
     Indication: COAGULOPATHY
     Dosage: 2.5MG PER DAY
     Route: 058
     Dates: start: 20111130
  2. PRASUGREL [Suspect]
     Indication: THROMBOSIS PROPHYLAXIS
     Dosage: 120MG PER DAY
     Route: 065
     Dates: start: 20111130
  3. HEPARIN SODIUM [Concomitant]
     Indication: COAGULOPATHY
     Dates: start: 20111130

REACTIONS (2)
  - RETROPERITONEAL HAEMATOMA [None]
  - SHOCK HAEMORRHAGIC [None]
